FAERS Safety Report 18511110 (Version 2)
Quarter: 2022Q4

REPORT INFORMATION
  Report Type: Spontaneous
  Country: US (occurrence: US)
  Receive Date: 20201117
  Receipt Date: 20221209
  Transmission Date: 20230113
  Serious: No
  Sender: FDA-Public Use
  Company Number: US-JNJFOC-20201115939

PATIENT
  Sex: Female

DRUGS (1)
  1. IMODIUM A-D [Suspect]
     Active Substance: LOPERAMIDE HYDROCHLORIDE
     Indication: Diarrhoea
     Dosage: 1 CAPLET PER DAY I CUT IN HALF I TAKE IT MORNING AND EVENING
     Route: 048
     Dates: start: 2015, end: 20201102

REACTIONS (2)
  - Wrong technique in product usage process [Unknown]
  - Product packaging difficult to open [Unknown]
